FAERS Safety Report 23859218 (Version 5)
Quarter: 2024Q2

REPORT INFORMATION
  Report Type: Spontaneous
  Country: US (occurrence: US)
  Receive Date: 20240515
  Receipt Date: 20240627
  Transmission Date: 20240716
  Serious: No
  Sender: FDA-Public Use
  Company Number: US-SANDOZ-SDZ2024US048826

PATIENT
  Age: 51 Year
  Sex: Female

DRUGS (1)
  1. COMBIPATCH [Suspect]
     Active Substance: ESTRADIOL\NORETHINDRONE ACETATE
     Indication: Menopausal symptoms
     Dosage: 0.05/0.14 MG, EVERY SUNDAYS AND WEDNESDAYS
     Route: 062

REACTIONS (16)
  - Application site dryness [Recovering/Resolving]
  - Application site urticaria [Not Recovered/Not Resolved]
  - Application site discolouration [Not Recovered/Not Resolved]
  - Discomfort [Unknown]
  - Application site bruise [Recovering/Resolving]
  - Application site erythema [Not Recovered/Not Resolved]
  - Application site scab [Recovering/Resolving]
  - Application site irritation [Not Recovered/Not Resolved]
  - Application site swelling [Not Recovered/Not Resolved]
  - Application site burn [Unknown]
  - Application site pruritus [Recovered/Resolved]
  - Product residue present [Not Recovered/Not Resolved]
  - Product administered at inappropriate site [Recovered/Resolved]
  - Product administration error [Recovered/Resolved]
  - Off label use [Not Recovered/Not Resolved]
  - Product storage error [Recovered/Resolved]

NARRATIVE: CASE EVENT DATE: 20240401
